FAERS Safety Report 10278274 (Version 7)
Quarter: 2015Q2

REPORT INFORMATION
  Report Type: Spontaneous
  Country: US (occurrence: US)
  Receive Date: 20140704
  Receipt Date: 20150501
  Transmission Date: 20150821
  Serious: No
  Sender: FDA-Public Use
  Company Number: US-PFIZER INC-2014182195

PATIENT
  Age: 62 Year
  Sex: Male
  Weight: 70 kg

DRUGS (10)
  1. LYRICA [Suspect]
     Active Substance: PREGABALIN
     Indication: MUSCULAR WEAKNESS
     Dosage: 75 MG, 2X/DAY
     Dates: start: 2014
  2. DOXAZOSIN [Concomitant]
     Active Substance: DOXAZOSIN\DOXAZOSIN MESYLATE
     Indication: PROSTATIC DISORDER
     Dosage: 1 MG, 1X/DAY
     Dates: start: 201305
  3. AMITRIPTYLINE [Concomitant]
     Active Substance: AMITRIPTYLINE
     Indication: NERVE INJURY
     Dosage: 50 MG, 1X/DAY
     Route: 048
     Dates: start: 201301
  4. TRAMADOL [Concomitant]
     Active Substance: TRAMADOL
     Indication: PAIN
     Dosage: 50 MG, 1X/DAY
     Route: 048
     Dates: start: 201301
  5. LYRICA [Suspect]
     Active Substance: PREGABALIN
     Indication: NERVE INJURY
     Dosage: 75 MG, 2X/DAY
     Route: 048
     Dates: start: 201404
  6. METFORMIN [Concomitant]
     Active Substance: METFORMIN HYDROCHLORIDE
     Indication: BLOOD GLUCOSE INCREASED
     Dosage: 1000 MG, 2X/DAY (AT BREAKFAST AND DINNER)
     Route: 048
     Dates: start: 201401
  7. LYRICA [Suspect]
     Active Substance: PREGABALIN
     Indication: DIABETIC NEUROPATHY
     Dosage: 75 MG, 2X/DAY
     Dates: start: 201409
  8. AMITRIPTYLINE [Concomitant]
     Active Substance: AMITRIPTYLINE
     Indication: NEURALGIA
     Dosage: 50 MG, 1X/DAY
     Route: 048
     Dates: start: 2014
  9. TRAMADOL [Concomitant]
     Active Substance: TRAMADOL
     Dosage: 50 MG, 1X/DAY
     Route: 048
     Dates: start: 2014
  10. METFORMIN [Concomitant]
     Active Substance: METFORMIN HYDROCHLORIDE
     Indication: DIABETES MELLITUS
     Dosage: 1000 MG, 2X/DAY
     Route: 048
     Dates: start: 201301

REACTIONS (3)
  - Vertigo [Not Recovered/Not Resolved]
  - Somnolence [Recovered/Resolved]
  - Eye disorder [Recovered/Resolved]

NARRATIVE: CASE EVENT DATE: 201409
